FAERS Safety Report 4921333-6 (Version None)
Quarter: 2006Q1

REPORT INFORMATION
  Report Type: 
  Country: None (occurrence: None)
  Receive Date: 20060224
  Receipt Date: 20060219
  Transmission Date: 20060701
  Serious: Yes (Hospitalization)
  Sender: FDA-Public Use
  Company Number: US-JNJFOC-20060204963

PATIENT
  Age: 4 Decade
  Sex: Female

DRUGS (1)
  1. LEVAQUIN [Suspect]
     Indication: DRUG USE FOR UNKNOWN INDICATION
     Route: 048
     Dates: start: 20060201, end: 20060201

REACTIONS (4)
  - ATRIAL FIBRILLATION [None]
  - DRUG DISPENSING ERROR [None]
  - HERPES ZOSTER [None]
  - URTICARIA [None]
